FAERS Safety Report 7834066-3 (Version None)
Quarter: 2011Q4

REPORT INFORMATION
  Report Type: 
  Country: None (occurrence: None)
  Receive Date: 20111024
  Receipt Date: 20111024
  Transmission Date: 20120403
  Serious: Yes (Hospitalization)
  Sender: FDA-Public Use
  Company Number: None

PATIENT
  Sex: Female
  Weight: 51.709 kg

DRUGS (3)
  1. CLONAZEPAM [Suspect]
     Indication: ANXIETY
     Dosage: 1 TABLET- EVERY
     Route: 048
     Dates: start: 20091006, end: 20091022
  2. CLONAZEPAM [Suspect]
     Indication: NAUSEA
     Dosage: 1 TABLET- EVERY
     Route: 048
     Dates: start: 20091006, end: 20091022
  3. TEGREOL-XR [Concomitant]
     Indication: AFFECTIVE DISORDER
     Dosage: TABLET
     Route: 048
     Dates: start: 20091020, end: 20091022

REACTIONS (15)
  - CHEST DISCOMFORT [None]
  - NAUSEA [None]
  - DECREASED APPETITE [None]
  - SUICIDAL IDEATION [None]
  - RETCHING [None]
  - DEPRESSED MOOD [None]
  - SUICIDE ATTEMPT [None]
  - RESTLESSNESS [None]
  - GUN SHOT WOUND [None]
  - NERVE INJURY [None]
  - POST-TRAUMATIC STRESS DISORDER [None]
  - PRURITUS [None]
  - FRUSTRATION [None]
  - AGITATION [None]
  - DYSPNOEA [None]
